FAERS Safety Report 5371100-7 (Version None)
Quarter: 2007Q2

REPORT INFORMATION
  Report Type: 
  Country: None (occurrence: None)
  Receive Date: 20070622
  Receipt Date: 20070618
  Transmission Date: 20071010
  Serious: Yes (Death, Hospitalization)
  Sender: FDA-Public Use
  Company Number: 062-C5013-07060825

PATIENT
  Age: 68 Year
  Sex: Male
  Weight: 72 kg

DRUGS (1)
  1. CC-5013 (LENALIDOMIDE) (CAPSULES) [Suspect]
     Indication: CHRONIC LYMPHOCYTIC LEUKAEMIA
     Dosage: 10  OR 25 MG DAILY, ORAL
     Route: 048
     Dates: start: 20070611, end: 20070614

REACTIONS (8)
  - ANAEMIA [None]
  - BLOOD CATECHOLAMINES DECREASED [None]
  - BONE PAIN [None]
  - CARDIAC FAILURE [None]
  - LOW CARDIAC OUTPUT SYNDROME [None]
  - RENAL FAILURE [None]
  - TUMOUR FLARE [None]
  - TUMOUR LYSIS SYNDROME [None]
